FAERS Safety Report 17767160 (Version 1)
Quarter: 2020Q2

REPORT INFORMATION
  Report Type: Spontaneous
  Country: FR (occurrence: FR)
  Receive Date: 20200511
  Receipt Date: 20200511
  Transmission Date: 20200714
  Serious: Yes (Other)
  Sender: FDA-Public Use
  Company Number: NVSC2020FR123104

PATIENT
  Age: 59 Year
  Sex: Female
  Weight: 63 kg

DRUGS (18)
  1. BACTRIM [Concomitant]
     Active Substance: SULFAMETHOXAZOLE\TRIMETHOPRIM
     Indication: PRODUCT USED FOR UNKNOWN INDICATION
     Dosage: UNK
     Route: 065
  2. CEFOTAXIME [Suspect]
     Active Substance: CEFOTAXIME SODIUM
     Indication: STREPTOCOCCAL BACTERAEMIA
     Dosage: 3000 MG, QD
     Route: 042
     Dates: start: 20191226, end: 20191230
  3. DIFFU K [Concomitant]
     Active Substance: POTASSIUM CHLORIDE
     Indication: PRODUCT USED FOR UNKNOWN INDICATION
     Dosage: UNK
     Route: 065
  4. LANSOPRAZOL MYLAN [Concomitant]
     Active Substance: LANSOPRAZOLE
     Indication: PRODUCT USED FOR UNKNOWN INDICATION
     Dosage: UNK
     Route: 065
  5. DAPTOMYCINE [Suspect]
     Active Substance: DAPTOMYCIN
     Indication: STREPTOCOCCAL BACTERAEMIA
     Dosage: 700 MG, QD
     Route: 042
     Dates: start: 20200110, end: 20200114
  6. RIFADIN [Suspect]
     Active Substance: RIFAMPIN
     Indication: STREPTOCOCCAL BACTERAEMIA
     Dosage: 1200 MG, QD
     Route: 041
     Dates: start: 20200121
  7. MOVICOL [Concomitant]
     Active Substance: POLYETHYLENE GLYCOL 3350\POTASSIUM CHLORIDE\SODIUM BICARBONATE\SODIUM CHLORIDE
     Indication: PRODUCT USED FOR UNKNOWN INDICATION
     Dosage: UNK
     Route: 065
  8. LINEZOLIDE [Suspect]
     Active Substance: LINEZOLID
     Indication: STREPTOCOCCAL BACTERAEMIA
     Dosage: 1200 MG, QD
     Route: 048
     Dates: start: 20191226, end: 20191230
  9. XYDALBA [Suspect]
     Active Substance: DALBAVANCIN HYDROCHLORIDE
     Indication: STREPTOCOCCAL BACTERAEMIA
     Dosage: 1800 MG
     Route: 048
     Dates: start: 20191230, end: 20200114
  10. XYDALBA [Suspect]
     Active Substance: DALBAVANCIN HYDROCHLORIDE
     Dosage: 1500 MG, QD
     Route: 042
     Dates: start: 20200110, end: 20200120
  11. NEFOPAM MEDISOL [Concomitant]
     Active Substance: NEFOPAM HYDROCHLORIDE
     Indication: PRODUCT USED FOR UNKNOWN INDICATION
     Dosage: UNK (20 MG/2 ML, SOLUTION INJECTABLE)
     Route: 065
  12. VANCOMYCIN MYLAN [Suspect]
     Active Substance: VANCOMYCIN
     Indication: STREPTOCOCCAL BACTERAEMIA
     Dosage: 2.5 G, QD
     Route: 041
     Dates: start: 20200121, end: 20200130
  13. LEVETIRACETAM MYLAN [Concomitant]
     Active Substance: LEVETIRACETAM
     Indication: PRODUCT USED FOR UNKNOWN INDICATION
     Dosage: UNK
     Route: 065
  14. BACLOFENE [Concomitant]
     Active Substance: BACLOFEN
     Indication: PRODUCT USED FOR UNKNOWN INDICATION
     Dosage: UNK
     Route: 065
  15. ZINFORO [Suspect]
     Active Substance: CEFTAROLINE FOSAMIL
     Indication: STREPTOCOCCAL BACTERAEMIA
     Dosage: 1800 MG, QD
     Route: 048
     Dates: start: 20191230, end: 20200114
  16. DOXYCYCLINE. [Suspect]
     Active Substance: DOXYCYCLINE
     Indication: STREPTOCOCCAL BACTERAEMIA
     Dosage: 200 MG, QD
     Route: 048
     Dates: start: 20200124
  17. DOLIPRANE [Concomitant]
     Active Substance: ACETAMINOPHEN
     Indication: PRODUCT USED FOR UNKNOWN INDICATION
     Dosage: UNK
     Route: 065
  18. LOVENOX [Concomitant]
     Active Substance: ENOXAPARIN SODIUM
     Indication: PRODUCT USED FOR UNKNOWN INDICATION
     Dosage: UNK
     Route: 065

REACTIONS (3)
  - Metabolic encephalopathy [Not Recovered/Not Resolved]
  - Myoclonus [Not Recovered/Not Resolved]
  - Confusional state [Not Recovered/Not Resolved]

NARRATIVE: CASE EVENT DATE: 20200126
